FAERS Safety Report 7722091-2 (Version None)
Quarter: 2011Q3

REPORT INFORMATION
  Report Type: 
  Country: None (occurrence: None)
  Receive Date: 20110831
  Receipt Date: 20110819
  Transmission Date: 20111222
  Serious: Yes (Other)
  Sender: FDA-Public Use
  Company Number: PHHY2010US45904

PATIENT
  Sex: Male
  Weight: 79 kg

DRUGS (25)
  1. LANSOPRAZOLE [Concomitant]
     Dosage: 30 MG/ DAY
  2. THEOPHYLLINE [Concomitant]
     Dosage: 200 MG, CONTROLLED RELEASE
  3. JANUVIA [Concomitant]
     Dosage: 100 MG, EACH MORNING
  4. METAMUCIL-2 [Concomitant]
     Dosage: 1/2 TBSP./ DAY
  5. VITAMIN D [Concomitant]
     Dosage: 50000 U/ WEEK
  6. COLACE [Concomitant]
     Dosage: 100 MG, 2/ DAY
  7. SYNVISC [Concomitant]
     Dosage: UNK UKN, UNK
     Dates: start: 20090512
  8. RADIAPLEX [Concomitant]
     Dosage: 2-3 TIMES ADAY
  9. MICOLOG [Concomitant]
     Dosage: UNK UKN, UNK
  10. ADVAIR DISKUS 100/50 [Concomitant]
     Dosage: 1 INHALATION 2 TIMES A DAY
  11. MIRALAX [Concomitant]
     Dosage: 17 MG, DAILY
  12. LUMIGAN [Concomitant]
     Dosage: 1 DROP IN EACH EYE AT BED TIME
  13. POLYSPORIN OINTMENT [Concomitant]
     Dosage: 2-3 TIMES ADAY
  14. LISINOPRIL [Concomitant]
     Dosage: 10 MG/ DAY
  15. PROVENTIL-HFA [Concomitant]
     Dosage: UNK UKN, UNK
  16. SYNVISC [Concomitant]
     Dosage: UNK UKN, UNK
     Dates: start: 20090423
  17. CORTISONE ACETATE [Concomitant]
     Dosage: UNK UKN, UNK
  18. GLYBURIDE [Concomitant]
     Dosage: 5 MG, UNK
  19. ARTIFICIAL TEARS [Concomitant]
     Dosage: MANY TIMES A DAY
  20. RECLAST [Suspect]
     Indication: SENILE OSTEOPOROSIS
     Dosage: 5 MG/100 ML/YEAR
     Route: 042
     Dates: start: 20100630
  21. PLAVIX [Concomitant]
     Dosage: 75 MG/ DAY
  22. CALCIUM CARBONATE [Concomitant]
     Dosage: 1200 MG, UNK
  23. CLOTRIMAZOLE [Concomitant]
     Dosage: UNK UKN, UNK
     Route: 061
  24. MICONAZOLE [Concomitant]
     Dosage: UNK UKN, UNK
     Route: 061
  25. AZOPT [Concomitant]
     Dosage: 1 DROP IN EACH EYE, TWICE A DAY

REACTIONS (13)
  - MUSCULAR WEAKNESS [None]
  - ARTHRALGIA [None]
  - BONE PAIN [None]
  - BLOOD PRESSURE INCREASED [None]
  - HEART RATE INCREASED [None]
  - BLOOD CALCIUM INCREASED [None]
  - ASTHENIA [None]
  - INFLUENZA LIKE ILLNESS [None]
  - BLOOD PARATHYROID HORMONE INCREASED [None]
  - DIARRHOEA [None]
  - CHILLS [None]
  - MYALGIA [None]
  - DYSSTASIA [None]
